FAERS Safety Report 9747228 (Version 1)
Quarter: 2013Q4

REPORT INFORMATION
  Report Type: Spontaneous
  Country: CA (occurrence: CA)
  Receive Date: 20131212
  Receipt Date: 20131212
  Transmission Date: 20140711
  Serious: Yes (Life-Threatening, Other)
  Sender: FDA-Public Use
  Company Number: CA-AMGEN-CANSP2013086423

PATIENT
  Age: 65 Year
  Sex: Female
  Weight: 86.17 kg

DRUGS (2)
  1. ENBREL [Suspect]
     Indication: PRODUCT USED FOR UNKNOWN INDICATION
     Dosage: UNK
     Route: 058
  2. TYLENOL                            /00020001/ [Concomitant]
     Dosage: UNK

REACTIONS (2)
  - Lymphoma [Unknown]
  - Hypergammaglobulinaemia benign monoclonal [Unknown]
